FAERS Safety Report 9188896 (Version 1)
Quarter: 2013Q1

REPORT INFORMATION
  Report Type: Spontaneous
  Country: US (occurrence: US)
  Receive Date: 20130326
  Receipt Date: 20130326
  Transmission Date: 20140127
  Serious: Yes (Other)
  Sender: FDA-Public Use
  Company Number: PHEH2013US006672

PATIENT
  Age: 0 Year
  Sex: Female

DRUGS (3)
  1. MYFORTIC [Suspect]
     Dosage: UNK
     Route: 064
     Dates: end: 20120404
  2. TACROLIMUS [Suspect]
     Dosage: UNK
     Route: 064
     Dates: end: 201205
  3. AZATHIOPRINE [Suspect]
     Dosage: UNK
     Route: 064
     Dates: start: 20120404, end: 201209

REACTIONS (2)
  - Premature baby [Unknown]
  - Foetal exposure during pregnancy [Unknown]
